FAERS Safety Report 24726784 (Version 3)
Quarter: 2024Q4

REPORT INFORMATION
  Report Type: Spontaneous
  Country: ES (occurrence: ES)
  Receive Date: 20241212
  Receipt Date: 20241221
  Transmission Date: 20250115
  Serious: Yes (Other)
  Sender: AMGEN
  Company Number: ES-ROCHE-10000144823

PATIENT
  Age: 62 Year
  Sex: Female
  Weight: 43.2 kg

DRUGS (18)
  1. BEVACIZUMAB [Suspect]
     Active Substance: BEVACIZUMAB
     Indication: Hepatocellular carcinoma
     Dosage: 600 MILLIGRAM, Q3WK (ON 06/NOV/2024, RECEIVED MOST RECENT DOSE PRIOR AE)
     Route: 040
     Dates: start: 20240228
  2. BEVACIZUMAB [Suspect]
     Active Substance: BEVACIZUMAB
     Dosage: 645 MILLIGRAM
     Route: 040
     Dates: start: 20241016
  3. ATEZOLIZUMAB [Suspect]
     Active Substance: ATEZOLIZUMAB
     Indication: Hepatocellular carcinoma
     Dosage: 1200 MILLIGRAM, Q3WK
     Route: 040
     Dates: start: 20240228
  4. TIRAGOLUMAB [Suspect]
     Active Substance: TIRAGOLUMAB
     Indication: Hepatocellular carcinoma
     Dosage: UNK UNK, Q3WK
     Route: 040
     Dates: start: 20240228
  5. TIRAGOLUMAB [Suspect]
     Active Substance: TIRAGOLUMAB
     Dosage: UNK UNK, Q3WK
     Route: 040
  6. RAMIPRIL [Concomitant]
     Active Substance: RAMIPRIL
     Indication: Hypertension
     Dosage: 2.5 MILLIGRAM, QD
     Route: 048
  7. ACETAMINOPHEN [Concomitant]
     Active Substance: ACETAMINOPHEN
     Indication: Neck pain
     Dosage: 650 MILLIGRAM (1) (AS NECESSARY)
     Route: 048
     Dates: start: 20240314
  8. NEBIVOLOL HYDROCHLORIDE [Concomitant]
     Active Substance: NEBIVOLOL HYDROCHLORIDE
     Indication: Hypertension
     Dosage: 5 MILLIGRAM, QD
     Route: 048
     Dates: start: 20240409
  9. ATORVASTATIN CALCIUM [Concomitant]
     Active Substance: ATORVASTATIN CALCIUM
     Indication: Dyslipidaemia
     Dosage: 20 MILLIGRAM, QD
     Route: 048
     Dates: start: 20240409
  10. ASPIRIN [Concomitant]
     Active Substance: ASPIRIN
     Indication: Mesenteric arteriosclerosis
     Dosage: 100 MILLIGRAM, QD
     Route: 048
     Dates: start: 20240409
  11. HYDROCHLOROTHIAZIDE [Concomitant]
     Active Substance: HYDROCHLOROTHIAZIDE
     Indication: Hypertension
     Dosage: 25 MILLIGRAM, QD
     Route: 048
     Dates: start: 20240409
  12. INFLUENZA VIRUS VACCINE [Concomitant]
     Active Substance: INFLUENZA VIRUS VACCINE
     Dosage: UNK (AS NECESSARY)
     Route: 030
     Dates: start: 20241030, end: 20241030
  13. PNEUMOCOCCAL VACCINE POLYVALENT NOS [Concomitant]
     Active Substance: PNEUMOCOCCAL VACCINE, POLYVALENT
     Dosage: UNK (AS NECESSARY)
     Route: 030
     Dates: start: 20241030, end: 20241030
  14. PREDNISONE [Concomitant]
     Active Substance: PREDNISONE
     Indication: Hepatic enzyme increased
     Dosage: 50 MILLIGRAM, QD
     Route: 048
     Dates: start: 20241114, end: 20241121
  15. PREDNISONE [Concomitant]
     Active Substance: PREDNISONE
     Dosage: 40 MILLIGRAM, QD (DURATION-5 DAYS)
     Route: 048
     Dates: start: 20241122, end: 20241126
  16. PREDNISONE [Concomitant]
     Active Substance: PREDNISONE
     Dosage: 20 MILLIGRAM, QD
     Route: 048
     Dates: start: 20241127, end: 20241130
  17. PREDNISONE [Concomitant]
     Active Substance: PREDNISONE
     Dosage: 20 MILLIGRAM, QD
     Route: 048
     Dates: start: 20241201
  18. PREDNISONE [Concomitant]
     Active Substance: PREDNISONE
     Dates: start: 20241201

REACTIONS (2)
  - Immune-mediated hepatitis [Recovering/Resolving]
  - Off label use [Recovering/Resolving]

NARRATIVE: CASE EVENT DATE: 20240228
